FAERS Safety Report 10654330 (Version 1)
Quarter: 2014Q4

REPORT INFORMATION
  Report Type: Spontaneous
  Country: US (occurrence: None)
  Receive Date: 20141215
  Receipt Date: 20141215
  Transmission Date: 20150529
  Serious: No
  Sender: FDA-Public Use
  Company Number: None

PATIENT
  Age: 54 Year
  Sex: Female
  Weight: 74.84 kg

DRUGS (1)
  1. PLEXION [Suspect]
     Active Substance: SULFACETAMIDE SODIUM\SULFUR
     Indication: ROSACEA
     Dosage: CLEANSER, APPLIED TO A SURFACE, USUALLY THE SKIN
     Dates: start: 20141125, end: 20141203

REACTIONS (3)
  - Product quality issue [None]
  - Product substitution issue [None]
  - Application site burn [None]

NARRATIVE: CASE EVENT DATE: 20141201
